FAERS Safety Report 10716134 (Version 1)
Quarter: 2015Q1

REPORT INFORMATION
  Report Type: Spontaneous
  Country: GB (occurrence: GB)
  Receive Date: 20150116
  Receipt Date: 20150116
  Transmission Date: 20150721
  Serious: Yes (Hospitalization)
  Sender: FDA-Public Use
  Company Number: GB-AUROBINDO-AUR-APL-2015-00202

PATIENT
  Age: 63 Year
  Sex: Male

DRUGS (3)
  1. NAPROXEN 500MG [Suspect]
     Active Substance: NAPROXEN
     Indication: ARTHRALGIA
     Dosage: 500 MG, TWO TIMES A DAY
     Route: 048
     Dates: start: 2008, end: 20141008
  2. NAPROXEN 500MG [Suspect]
     Active Substance: NAPROXEN
     Indication: OSTEOARTHRITIS
  3. PARACETAMOL [Concomitant]
     Active Substance: ACETAMINOPHEN
     Indication: PAIN
     Dosage: 1 G, UNK
     Route: 048

REACTIONS (2)
  - Gastrointestinal pain [Recovered/Resolved]
  - Haemoptysis [Recovered/Resolved]

NARRATIVE: CASE EVENT DATE: 20141007
